FAERS Safety Report 6106030-6 (Version None)
Quarter: 2009Q1

REPORT INFORMATION
  Report Type: 
  Country: None (occurrence: None)
  Receive Date: 20090306
  Receipt Date: 20090223
  Transmission Date: 20090719
  Serious: No
  Sender: FDA-Public Use
  Company Number: CH-ROCHE-616383

PATIENT
  Age: 30 Year
  Sex: Female

DRUGS (1)
  1. ROACCUTAN [Suspect]
     Indication: ACNE
     Route: 048
     Dates: start: 20080601, end: 20081223

REACTIONS (2)
  - NO ADVERSE EVENT [None]
  - PREGNANCY [None]
